FAERS Safety Report 7383926-9 (Version None)
Quarter: 2011Q1

REPORT INFORMATION
  Report Type: 
  Country: None (occurrence: None)
  Receive Date: 20110330
  Receipt Date: 20101209
  Transmission Date: 20110831
  Serious: No
  Sender: FDA-Public Use
  Company Number: US-MYLANLABS-2010S1022675

PATIENT
  Sex: Male

DRUGS (2)
  1. TRAZODONE HCL [Suspect]
     Indication: INSOMNIA
     Route: 048
     Dates: start: 20101207
  2. CLONAZEPAM [Concomitant]
     Indication: ANXIETY
     Route: 048

REACTIONS (2)
  - HANGOVER [None]
  - DRY MOUTH [None]
